FAERS Safety Report 9722477 (Version 2)
Quarter: 2013Q4

REPORT INFORMATION
  Report Type: Spontaneous
  Country: FR (occurrence: FR)
  Receive Date: 20131202
  Receipt Date: 20131216
  Transmission Date: 20140711
  Serious: Yes (Life-Threatening, Hospitalization, Other)
  Sender: FDA-Public Use
  Company Number: PHHY2013FR138875

PATIENT
  Sex: Female

DRUGS (8)
  1. EXJADE [Suspect]
     Indication: MYELODYSPLASTIC SYNDROME
     Dosage: 2 DF DAILY
     Route: 048
     Dates: start: 20131015
  2. EXJADE [Suspect]
     Indication: SERUM FERRITIN INCREASED
     Dosage: QD
     Route: 048
     Dates: start: 20131103, end: 20131103
  3. ATACAND [Concomitant]
     Dosage: 4 MG, QD
     Route: 048
  4. EUPRESSYL [Concomitant]
     Dosage: 30 MG, QD
     Route: 048
  5. LEVOTHYROXINE [Concomitant]
     Dosage: 10 DRP, QD
     Route: 048
  6. INEXIUM//ESOMEPRAZOLE SODIUM [Concomitant]
     Dosage: 40 MG, QD
     Route: 048
  7. ARANESP [Concomitant]
     Dosage: 150 UG WEEKLY
  8. ATARAX-P [Concomitant]
     Dosage: 25 MG, QD
     Route: 048

REACTIONS (7)
  - Anaphylactic shock [Recovered/Resolved]
  - Erythema [Recovered/Resolved]
  - Pruritus [Unknown]
  - Respiratory distress [Unknown]
  - Diarrhoea [Unknown]
  - Hyperthermia [Unknown]
  - Acute leukaemia [Unknown]
